FAERS Safety Report 4854279-2 (Version None)
Quarter: 2005Q4

REPORT INFORMATION
  Report Type: 
  Country: None (occurrence: None)
  Receive Date: 20051213
  Receipt Date: 20051108
  Transmission Date: 20060501
  Serious: Yes (Death)
  Sender: FDA-Public Use
  Company Number: MK200512-0042-1

PATIENT
  Age: 43 Year

DRUGS (2)
  1. OXYCODONE AND ACETAMINOPHEN [Suspect]
     Dates: end: 20040101
  2. ACETAMINOPHEN/BUTALBITAL/CAFFEINE AND ETHANOL (STRENGTHS, DOSES AND TH [Suspect]

REACTIONS (3)
  - ALCOHOL USE [None]
  - COMPLETED SUICIDE [None]
  - MULTIPLE DRUG OVERDOSE INTENTIONAL [None]
